FAERS Safety Report 21537547 (Version 1)
Quarter: 2022Q4

REPORT INFORMATION
  Report Type: Report from Study
  Country: US (occurrence: US)
  Receive Date: 20221101
  Receipt Date: 20221101
  Transmission Date: 20230113
  Serious: No
  Sender: FDA-Public Use
  Company Number: US-ABBVIE-4152666

PATIENT
  Sex: Female

DRUGS (3)
  1. RINVOQ [Suspect]
     Active Substance: UPADACITINIB
     Indication: Product used for unknown indication
     Route: 048
  2. Moderna [Concomitant]
     Indication: COVID-19 immunisation
     Dosage: 1ST DOSE
     Route: 030
     Dates: start: 20210408, end: 20210408
  3. Moderna [Concomitant]
     Indication: COVID-19 immunisation
     Dosage: 2ND DOSE
     Dates: start: 20210505, end: 20210505

REACTIONS (1)
  - Blood pressure increased [Not Recovered/Not Resolved]
